FAERS Safety Report 5814149-X (Version None)
Quarter: 2008Q3

REPORT INFORMATION
  Report Type: 
  Country: None (occurrence: None)
  Receive Date: 20080715
  Receipt Date: 20080701
  Transmission Date: 20090109
  Serious: Yes (Hospitalization)
  Sender: FDA-Public Use
  Company Number: 14731

PATIENT
  Age: 59 Year
  Sex: Female

DRUGS (2)
  1. MORPHINE SULFATE [Suspect]
     Indication: PAIN
     Dosage: 60 MG TID ORALLY
     Route: 048
     Dates: start: 20080101
  2. UNSPECIFIED MEDICATIONS FOR DEPRESSION [Concomitant]

REACTIONS (8)
  - DYSKINESIA [None]
  - EYE MOVEMENT DISORDER [None]
  - HALLUCINATION [None]
  - INCOHERENT [None]
  - OVERDOSE [None]
  - PHARMACEUTICAL PRODUCT COMPLAINT [None]
  - PNEUMONIA [None]
  - URINARY TRACT INFECTION [None]
